FAERS Safety Report 15051715 (Version 1)
Quarter: 2018Q3

REPORT INFORMATION
  Report Type: Spontaneous
  Country: RU (occurrence: RU)
  Receive Date: 20180622
  Receipt Date: 20180622
  Transmission Date: 20181010
  Serious: Yes (Hospitalization, Other)
  Sender: FDA-Public Use
  Company Number: RU-SA-2018SA155389

PATIENT
  Age: 12 Year

DRUGS (5)
  1. EVOLTRA [Suspect]
     Active Substance: CLOFARABINE
  2. CYCLOPHOSPHAMIDE. [Concomitant]
     Active Substance: CYCLOPHOSPHAMIDE
  3. TEPADINA [Concomitant]
     Active Substance: THIOTEPA
  4. MYLERAN [Suspect]
     Active Substance: BUSULFAN
  5. CYTARABINUM [Suspect]
     Active Substance: CYTARABINE

REACTIONS (3)
  - Febrile neutropenia [Unknown]
  - Graft versus host disease [Unknown]
  - Mucosal inflammation [Unknown]
